FAERS Safety Report 17573212 (Version 10)
Quarter: 2025Q1

REPORT INFORMATION
  Report Type: Report from Study
  Country: JP (occurrence: JP)
  Receive Date: 20200323
  Receipt Date: 20250313
  Transmission Date: 20250408
  Serious: Yes (Hospitalization)
  Sender: ABBVIE
  Company Number: JP-TAKEDA-2020TJP006081

PATIENT
  Age: 48 Year
  Sex: Male
  Weight: 48 kg

DRUGS (9)
  1. LEUPROLIDE ACETATE [Suspect]
     Active Substance: LEUPROLIDE ACETATE
     Indication: Bulbospinal muscular atrophy congenital
     Dosage: 11.25 MILLIGRAM, Q3MONTHS
     Route: 058
     Dates: start: 20181221
  2. CLONAZEPAM [Concomitant]
     Active Substance: CLONAZEPAM
     Indication: Bulbospinal muscular atrophy congenital
     Route: 065
     Dates: start: 20220408, end: 20220930
  3. PITAVASTATIN CALCIUM [Concomitant]
     Active Substance: PITAVASTATIN CALCIUM
     Indication: Product used for unknown indication
     Dates: start: 20220408
  4. ETHYL LOFLAZEPATE [Concomitant]
     Active Substance: ETHYL LOFLAZEPATE
     Indication: Depression
     Route: 065
     Dates: end: 20191112
  5. TRAZODONE HYDROCHLORIDE [Concomitant]
     Active Substance: TRAZODONE HYDROCHLORIDE
     Indication: Depression
     Route: 065
  6. RILMAZAFONE HYDROCHLORIDE [Concomitant]
     Active Substance: RILMAZAFONE HYDROCHLORIDE
     Indication: Insomnia
     Route: 065
     Dates: end: 20200324
  7. ALLOPURINOL [Concomitant]
     Active Substance: ALLOPURINOL
     Indication: Hyperuricaemia
     Route: 065
  8. SUVOREXANT [Concomitant]
     Active Substance: SUVOREXANT
     Indication: Insomnia
     Route: 065
     Dates: start: 20191003
  9. LOXOPROFEN SODIUM [Concomitant]
     Active Substance: LOXOPROFEN SODIUM
     Indication: Back pain
     Route: 065
     Dates: start: 20200529

REACTIONS (6)
  - Fracture [Recovered/Resolved]
  - Fall [Recovered/Resolved]
  - Hepatic function abnormal [Recovered/Resolved]
  - Weight increased [Recovering/Resolving]
  - Dyslipidaemia [Recovering/Resolving]
  - Nodal osteoarthritis [Recovering/Resolving]

NARRATIVE: CASE EVENT DATE: 20190118
